FAERS Safety Report 10033003 (Version 1)
Quarter: 2014Q1

REPORT INFORMATION
  Report Type: Spontaneous
  Country: FR (occurrence: FR)
  Receive Date: 20140324
  Receipt Date: 20140324
  Transmission Date: 20141002
  Serious: Yes (Other)
  Sender: FDA-Public Use
  Company Number: PHHY2014FR034759

PATIENT
  Age: 48 Year
  Sex: Male

DRUGS (3)
  1. EXFORGE HCT [Suspect]
     Indication: HYPERTENSION
     Dosage: UNK UKN, UNK
     Dates: start: 201403
  2. KEPPRA [Concomitant]
     Indication: EPILEPSY
     Dosage: UNK UKN, UNK
  3. DEPAKINE [Concomitant]
     Indication: EPILEPSY
     Dosage: UNK UKN, UNK

REACTIONS (1)
  - Epilepsy [Unknown]
